FAERS Safety Report 4390770-3 (Version None)
Quarter: 2004Q3

REPORT INFORMATION
  Report Type: 
  Country: None (occurrence: None)
  Receive Date: 20040707
  Receipt Date: 20030618
  Transmission Date: 20050211
  Serious: Yes (Other)
  Sender: FDA-Public Use
  Company Number: US-MERCK-0306USA02286

PATIENT
  Age: 58 Year
  Sex: Female

DRUGS (4)
  1. PREMPRO [Concomitant]
     Route: 065
  2. SYNTHROID [Concomitant]
     Route: 065
  3. VIOXX [Suspect]
     Indication: ARTHRITIS
     Route: 048
     Dates: start: 19990901, end: 20010207
  4. VIOXX [Suspect]
     Indication: ARTHRALGIA
     Route: 048
     Dates: start: 19990901, end: 20010207

REACTIONS (4)
  - ALOPECIA [None]
  - ARTHROPATHY [None]
  - DRUG INEFFECTIVE [None]
  - HAIR COLOUR CHANGES [None]
